FAERS Safety Report 23591946 (Version 1)
Quarter: 2024Q1

REPORT INFORMATION
  Report Type: Report from Study
  Country: CA (occurrence: None)
  Receive Date: 20240304
  Receipt Date: 20240304
  Transmission Date: 20240409
  Serious: Yes (Death, Hospitalization, Other)
  Sender: FDA-Public Use
  Company Number: 2024A044080

PATIENT
  Age: 28138 Day
  Sex: Female

DRUGS (1)
  1. TAGRISSO [Suspect]
     Active Substance: OSIMERTINIB
     Indication: Non-small cell lung cancer metastatic
     Route: 048
     Dates: start: 20180921, end: 202401

REACTIONS (2)
  - Acute kidney injury [Unknown]
  - Ischaemic stroke [Fatal]

NARRATIVE: CASE EVENT DATE: 20240110
